FAERS Safety Report 6781727-3 (Version None)
Quarter: 2010Q2

REPORT INFORMATION
  Report Type: 
  Country: None (occurrence: None)
  Receive Date: 20100618
  Receipt Date: 20100618
  Transmission Date: 20101027
  Serious: Yes (Hospitalization)
  Sender: FDA-Public Use
  Company Number: None

PATIENT
  Sex: Female
  Weight: 19.7 kg

DRUGS (26)
  1. METHOTREXATE [Suspect]
     Dosage: 324 MG
  2. VINCRISTINE SULFATE [Suspect]
     Dosage: 5.5 MG
  3. ACETAMINOPHEN [Concomitant]
  4. AMPHOTERICIN B [Concomitant]
  5. ATOVAQUONE [Concomitant]
  6. ATROPINE [Concomitant]
  7. CEFEPIME [Concomitant]
  8. CEFTRIAXONE [Concomitant]
  9. CHLORHEXIDINE [Concomitant]
  10. DIPHENHYDRAMINE [Concomitant]
  11. FENTANYL [Concomitant]
  12. HYDROCORTISONE [Concomitant]
  13. INTRALIPIDS [Concomitant]
  14. KETAMINE [Concomitant]
  15. MEROPENEM [Concomitant]
  16. METOCLOPRAMIDE [Concomitant]
  17. METRONIDAZOLE [Concomitant]
  18. MIDAZOLAM HCL [Concomitant]
  19. MORPHINE [Concomitant]
  20. ONDANSTERONE [Concomitant]
  21. OXYCODONE HCL [Concomitant]
  22. TPN ELECTROLYTES IN PLASTIC CONTAINER [Concomitant]
  23. VANCOMYCIN [Concomitant]
  24. VANCOMYCIN [Concomitant]
  25. ALTEPLASE [Concomitant]
  26. PENTAMIDINE ISETHIONATE [Concomitant]

REACTIONS (7)
  - ANORECTAL DISORDER [None]
  - BONE MARROW FAILURE [None]
  - CLOSTRIDIUM TEST POSITIVE [None]
  - HYPOPHAGIA [None]
  - PANCREATITIS [None]
  - STOMATITIS [None]
  - VAGINAL LESION [None]
